FAERS Safety Report 6231891-X (Version None)
Quarter: 2009Q2

REPORT INFORMATION
  Report Type: 
  Country: None (occurrence: None)
  Receive Date: 20090616
  Receipt Date: 20090611
  Transmission Date: 20091009
  Serious: Yes (Hospitalization, Other)
  Sender: FDA-Public Use
  Company Number: US-BRISTOL-MYERS SQUIBB COMPANY-14661649

PATIENT
  Age: 74 Year
  Sex: Female
  Weight: 89 kg

DRUGS (3)
  1. COUMADIN [Suspect]
     Indication: COAGULOPATHY
     Route: 048
     Dates: start: 20070101, end: 20090527
  2. VOLTAREN [Suspect]
     Indication: OSTEOARTHRITIS
     Route: 061
     Dates: start: 20090501, end: 20090527
  3. TIKOSYN [Concomitant]
     Dates: start: 20080101

REACTIONS (3)
  - LARGE INTESTINAL HAEMORRHAGE [None]
  - PROTHROMBIN LEVEL DECREASED [None]
  - WRONG TECHNIQUE IN DRUG USAGE PROCESS [None]
